FAERS Safety Report 7328336-5 (Version None)
Quarter: 2011Q1

REPORT INFORMATION
  Report Type: 
  Country: None (occurrence: None)
  Receive Date: 20110303
  Receipt Date: 20110221
  Transmission Date: 20110831
  Serious: Yes (Other)
  Sender: FDA-Public Use
  Company Number: FR-SANOFI-AVENTIS-2011SA011204

PATIENT
  Sex: Female

DRUGS (5)
  1. XANAX [Concomitant]
     Route: 065
  2. ALL OTHER THERAPEUTIC PRODUCTS [Concomitant]
  3. STILNOX [Suspect]
     Route: 048
     Dates: start: 19930101
  4. LYRICA [Concomitant]
     Route: 065
  5. RISPERDAL [Concomitant]
     Route: 065

REACTIONS (6)
  - CONDITION AGGRAVATED [None]
  - NERVOUSNESS [None]
  - MENTAL DISORDER [None]
  - SLEEP APNOEA SYNDROME [None]
  - TOXICITY TO VARIOUS AGENTS [None]
  - TRANSIENT ISCHAEMIC ATTACK [None]
